FAERS Safety Report 12998690 (Version 1)
Quarter: 2016Q4

REPORT INFORMATION
  Report Type: Spontaneous
  Country: PL (occurrence: PL)
  Receive Date: 20161205
  Receipt Date: 20161205
  Transmission Date: 20170207
  Serious: Yes (Hospitalization)
  Sender: FDA-Public Use
  Company Number: PL-PFIZER INC-2016555468

PATIENT
  Age: 76 Year
  Sex: Female
  Weight: 85 kg

DRUGS (2)
  1. CARBOPLATIN. [Suspect]
     Active Substance: CARBOPLATIN
     Indication: UTERINE CANCER
     Dosage: 360 MG, UNK
     Route: 042
     Dates: start: 20160912, end: 20160912
  2. PACLITAXEL KABI [Suspect]
     Active Substance: PACLITAXEL
     Indication: UTERINE CANCER
     Dosage: 335 MG, UNK
     Route: 042
     Dates: start: 20160912, end: 20160912

REACTIONS (5)
  - Dehydration [Recovered/Resolved]
  - Product use issue [Unknown]
  - Anaemia [Recovered/Resolved]
  - Diarrhoea [Recovered/Resolved]
  - Electrolyte imbalance [Recovered/Resolved]

NARRATIVE: CASE EVENT DATE: 20161011
